FAERS Safety Report 10108828 (Version 2)
Quarter: 2014Q2

REPORT INFORMATION
  Report Type: Spontaneous
  Country: US (occurrence: US)
  Receive Date: 20140425
  Receipt Date: 20140425
  Transmission Date: 20141212
  Serious: Yes (Hospitalization)
  Sender: FDA-Public Use
  Company Number: 2014SP000146

PATIENT
  Age: 65 Year
  Sex: Female
  Weight: 50 kg

DRUGS (10)
  1. METHOTREXATE [Suspect]
     Indication: RHEUMATOID ARTHRITIS
     Route: 048
     Dates: start: 2005
  2. PREDNISONE [Suspect]
     Indication: RHEUMATOID ARTHRITIS
     Route: 048
     Dates: start: 20121107
  3. TRAMADOL [Suspect]
     Indication: SCIATICA
     Route: 048
     Dates: start: 20121009
  4. FOLIC ACID [Concomitant]
     Indication: RHEUMATOID ARTHRITIS
     Dates: start: 2005
  5. CALCIUM CHLORIDE [Concomitant]
     Indication: OSTEOPOROSIS
     Dates: start: 20121009
  6. COLECALCIFEROL [Concomitant]
     Indication: OSTEOPOROSIS
     Dates: start: 20121009
  7. COPPER [Concomitant]
     Indication: OSTEOPOROSIS
     Dates: start: 20121009
  8. MAGNESIUM [Concomitant]
     Indication: OSTEOPOROSIS
     Dates: start: 20121009
  9. MANGANESE [Concomitant]
     Indication: OSTEOPOROSIS
     Dates: start: 20121009
  10. ZINC [Concomitant]
     Indication: OSTEOPOROSIS
     Dates: start: 20121009

REACTIONS (4)
  - Gastroenteritis viral [Recovered/Resolved]
  - Abdominal pain [Recovered/Resolved]
  - Nausea [Recovered/Resolved]
  - Pyrexia [Recovered/Resolved]
